FAERS Safety Report 7129451-1 (Version None)
Quarter: 2010Q4

REPORT INFORMATION
  Report Type: 
  Country: None (occurrence: None)
  Receive Date: 20101130
  Receipt Date: 20101121
  Transmission Date: 20110411
  Serious: Yes (Other)
  Sender: FDA-Public Use
  Company Number: US-SANOFI-AVENTIS-2010SA071242

PATIENT
  Age: 40 Year
  Sex: Male

DRUGS (4)
  1. LANTUS [Suspect]
     Indication: TYPE 1 DIABETES MELLITUS
     Dosage: DOSE:8 UNIT(S)
     Route: 058
  2. LANTUS [Suspect]
     Indication: PANCREATECTOMY
     Dosage: DOSE:8 UNIT(S)
     Route: 058
  3. SOLOSTAR [Suspect]
     Indication: TYPE 1 DIABETES MELLITUS
  4. SOLOSTAR [Suspect]
     Indication: PANCREATECTOMY

REACTIONS (1)
  - BRAIN INJURY [None]
